FAERS Safety Report 5377410-1 (Version None)
Quarter: 2007Q3

REPORT INFORMATION
  Report Type: 
  Country: None (occurrence: None)
  Receive Date: 20070703
  Receipt Date: 20070626
  Transmission Date: 20080115
  Serious: Yes (Other)
  Sender: FDA-Public Use
  Company Number: B0471766A

PATIENT
  Age: 58 Year
  Sex: Female

DRUGS (6)
  1. AVANDAMET [Suspect]
     Indication: DIABETES MELLITUS
     Route: 048
     Dates: start: 19951101
  2. LIPITOR [Concomitant]
  3. ASPIRIN [Concomitant]
  4. DIAMICRON [Concomitant]
  5. CALCICHEW [Concomitant]
  6. FORTEO [Concomitant]

REACTIONS (1)
  - PATHOLOGICAL FRACTURE [None]
